FAERS Safety Report 6347150-0 (Version None)
Quarter: 2009Q3

REPORT INFORMATION
  Report Type: 
  Country: None (occurrence: None)
  Receive Date: 20090910
  Receipt Date: 20090907
  Transmission Date: 20100115
  Serious: Yes (Other)
  Sender: FDA-Public Use
  Company Number: IL-ROCHE-643878

PATIENT
  Sex: Male

DRUGS (2)
  1. VALCYTE [Suspect]
     Indication: PROPHYLAXIS
     Dosage: STRENGTH, DOSE AND FORM NOT REPORTED.
     Route: 048
     Dates: start: 20090401
  2. UNSPECIFIED DRUG [Concomitant]
     Indication: TRANSPLANT
     Dosage: DRUG NAME REPORTED AS STANDARD POST TRANSPLANT REGIMEN.

REACTIONS (1)
  - ABORTION SPONTANEOUS [None]
